FAERS Safety Report 9708290 (Version 3)
Quarter: 2014Q1

REPORT INFORMATION
  Report Type: Spontaneous
  Country: US (occurrence: US)
  Receive Date: 20131125
  Receipt Date: 20140110
  Transmission Date: 20141002
  Serious: Yes (Death)
  Sender: FDA-Public Use
  Company Number: US-INCYTE CORPORATION-2013IN001977

PATIENT
  Sex: Male

DRUGS (10)
  1. JAKAFI [Suspect]
     Indication: MYELOFIBROSIS
     Dosage: 15 MG, BID
     Route: 048
     Dates: start: 20130719
  2. JAKAFI [Suspect]
     Dosage: NOT SPECIFIED
     Route: 048
     Dates: start: 20130801, end: 20130830
  3. CARVEDILOL [Concomitant]
     Dosage: 12.5 MG, BID
     Route: 048
  4. HYDROCODONE BITARTRATE AND ACETAMINOPHEN [Concomitant]
     Dosage: 1 DF,Q 4 HOURS PRN
     Route: 048
  5. ISOSORBIDE MONONITRATE [Concomitant]
     Dosage: 1 DF, QD
     Route: 048
  6. LASIX                              /00032601/ [Concomitant]
     Dosage: 20 MG, QD
     Route: 048
  7. LEVAQUIN [Concomitant]
     Dosage: 500 MG, QD X 7 DAYS
     Route: 048
     Dates: start: 20130814
  8. MIRTAZAPINE [Concomitant]
     Dosage: 15 MG, QD
     Route: 048
     Dates: end: 20130816
  9. NITROSTAT [Concomitant]
     Dosage: 0.4 MG, PRN
     Route: 060
  10. OMEPRAZOLE [Concomitant]
     Dosage: 20 MG, QD
     Route: 048

REACTIONS (2)
  - Disease progression [Fatal]
  - Normochromic normocytic anaemia [Fatal]
